FAERS Safety Report 21128328 (Version 1)
Quarter: 2022Q3

REPORT INFORMATION
  Report Type: Spontaneous
  Country: FR (occurrence: None)
  Receive Date: 20220725
  Receipt Date: 20220725
  Transmission Date: 20221027
  Serious: Yes (Other)
  Sender: FDA-Public Use
  Company Number: 2022A251935

PATIENT
  Age: 75 Year
  Sex: Female

DRUGS (2)
  1. ESOMEPRAZOLE [Suspect]
     Active Substance: ESOMEPRAZOLE
     Indication: Product used for unknown indication
     Dosage: UNK
     Route: 065
     Dates: start: 201612
  2. AZOPT [Suspect]
     Active Substance: BRINZOLAMIDE
     Indication: Glaucoma
     Dosage: 1 DRP, QD (1 DROP IN EACH EYE EVERY EVENING)
     Route: 047
     Dates: start: 1999

REACTIONS (5)
  - Apnoea [Unknown]
  - Myocarditis [Unknown]
  - Cardiac disorder [Unknown]
  - Alopecia [Unknown]
  - Gait disturbance [Unknown]

NARRATIVE: CASE EVENT DATE: 20200501
